FAERS Safety Report 25074557 (Version 2)
Quarter: 2025Q1

REPORT INFORMATION
  Report Type: Spontaneous
  Country: US (occurrence: US)
  Receive Date: 20250313
  Receipt Date: 20250327
  Transmission Date: 20250408
  Serious: Yes (Other)
  Sender: AMGEN
  Company Number: US-AMGEN-USASP2025044917

PATIENT
  Age: 61 Year
  Sex: Male

DRUGS (4)
  1. REPATHA [Suspect]
     Active Substance: EVOLOCUMAB
     Indication: Hyperlipidaemia
     Dosage: 140 MILLIGRAM, QMO
     Route: 058
     Dates: start: 20221129
  2. REPATHA [Suspect]
     Active Substance: EVOLOCUMAB
     Indication: Hypertensive heart disease
  3. REPATHA [Suspect]
     Active Substance: EVOLOCUMAB
     Indication: Mitral valve incompetence
  4. REPATHA [Suspect]
     Active Substance: EVOLOCUMAB
     Indication: Type 2 diabetes mellitus

REACTIONS (5)
  - Coronary artery bypass [Unknown]
  - Intercepted product administration error [Unknown]
  - Off label use [Unknown]
  - Device difficult to use [Unknown]
  - Drug dose omission by device [Unknown]

NARRATIVE: CASE EVENT DATE: 20230101
